FAERS Safety Report 16038518 (Version 1)
Quarter: 2019Q1

REPORT INFORMATION
  Report Type: Spontaneous
  Country: None (occurrence: US)
  Receive Date: 20190305
  Receipt Date: 20190305
  Transmission Date: 20190418
  Serious: No
  Sender: FDA-Public Use
  Company Number: US-ARMSTRONG PHARMACEUTICALS, INC.-2063598

PATIENT
  Age: 61 Year
  Sex: Female
  Weight: 50.46 kg

DRUGS (1)
  1. PRIMATENE MIST [Suspect]
     Active Substance: EPINEPHRINE
     Route: 055

REACTIONS (2)
  - Sputum discoloured [Recovered/Resolved]
  - Dyspnoea [Recovered/Resolved]
